FAERS Safety Report 8087676-5 (Version None)
Quarter: 2012Q1

REPORT INFORMATION
  Report Type: 
  Country: None (occurrence: None)
  Receive Date: 20120128
  Receipt Date: 20110421
  Transmission Date: 20120608
  Serious: No
  Sender: FDA-Public Use
  Company Number: US-ABBOTT-11P-163-0720960-00

PATIENT
  Sex: Female
  Weight: 104.42 kg

DRUGS (13)
  1. HUMIRA [Suspect]
     Indication: FIBROMYALGIA
  2. TOPROL-XL [Concomitant]
     Indication: HYPERTENSION
  3. NASONEX [Concomitant]
     Indication: HYPERSENSITIVITY
  4. EFFEXOR [Concomitant]
     Indication: PANIC REACTION
  5. TRANXENE [Concomitant]
     Indication: ANXIETY
  6. HUMIRA [Suspect]
     Indication: RHEUMATOID ARTHRITIS
     Dates: start: 20110331
  7. TRANXENE [Concomitant]
     Indication: PANIC REACTION
  8. PLAQUENIL [Concomitant]
     Indication: RHEUMATOID ARTHRITIS
  9. CLOBETASOL [Concomitant]
     Indication: PSORIASIS
  10. EFFEXOR [Concomitant]
     Indication: DEPRESSION
  11. UNKNOWN PATCH [Concomitant]
     Indication: BACK PAIN
     Route: 062
  12. HUMIRA [Suspect]
     Indication: PSORIASIS
  13. ATIVAN [Concomitant]
     Indication: COUGH

REACTIONS (6)
  - LIGAMENT SPRAIN [None]
  - FRACTURE [None]
  - RASH [None]
  - MOVEMENT DISORDER [None]
  - LICHEN PLANUS [None]
  - LOWER LIMB FRACTURE [None]
